FAERS Safety Report 20565735 (Version 1)
Quarter: 2022Q1

REPORT INFORMATION
  Report Type: Spontaneous
  Country: US (occurrence: None)
  Receive Date: 20220308
  Receipt Date: 20220308
  Transmission Date: 20220423
  Serious: No
  Sender: FDA-Public Use
  Company Number: US-MICRO LABS LIMITED-ML2022-00786

PATIENT

DRUGS (1)
  1. CROMOLYN SODIUM [Suspect]
     Active Substance: CROMOLYN SODIUM
     Indication: Mast cell activation syndrome
     Dosage: 400MG, FOUR TIMES A DAY (STRENGTH: 100 MG IN 5 ML)

REACTIONS (2)
  - Diarrhoea [Unknown]
  - Product substitution issue [Unknown]
